FAERS Safety Report 9342052 (Version 3)
Quarter: 2013Q3

REPORT INFORMATION
  Report Type: Spontaneous
  Country: JP (occurrence: None)
  Receive Date: 20130606
  Receipt Date: 20130809
  Transmission Date: 20140515
  Serious: Yes (Other)
  Sender: FDA-Public Use
  Company Number: TCI2013A03100

PATIENT
  Age: 72 Year
  Sex: Male

DRUGS (8)
  1. ACTOS (PIOGLITAZONE HYDROCHLORIDE) [Suspect]
     Indication: TYPE 2 DIABETES MELLITUS
     Route: 048
     Dates: start: 20130509, end: 20130516
  2. BAYASPIRIN (ACETYLSALICYLIC ACID) (ACETYLSALICYLIC ACID) [Concomitant]
  3. URSO (URSODEOXYCHOLIC ACID) [Concomitant]
  4. GLYCYRON (GLYCINE, DL-METHIONINE, GLYCYRRHIZIC ACID) [Concomitant]
  5. MAGLAX (MAGNESIUM OXIDE) [Concomitant]
  6. EQUA (VILDAGLIPTIN) [Concomitant]
  7. LANTUS (INSULINE GLARGINE) [Concomitant]
  8. AMARYL (GLIMEPERIDE) [Concomitant]

REACTIONS (3)
  - Leukopenia [None]
  - Bone marrow failure [None]
  - Thrombocytopenia [None]
